FAERS Safety Report 12386788 (Version 1)
Quarter: 2016Q2

REPORT INFORMATION
  Report Type: Spontaneous
  Country: US (occurrence: US)
  Receive Date: 20160519
  Receipt Date: 20160519
  Transmission Date: 20160815
  Serious: Yes (Hospitalization, Other)
  Sender: FDA-Public Use
  Company Number: ADR-2015-01623

PATIENT
  Age: 32 Year
  Sex: Male
  Weight: 82 kg

DRUGS (12)
  1. MIDODRINE [Suspect]
     Active Substance: MIDODRINE
  2. LIORESAL [Suspect]
     Active Substance: BACLOFEN
     Dosage: 260 MCG/DAY
     Route: 037
  3. MULTIVITAMIN [Suspect]
     Active Substance: VITAMINS
  4. CEFAZOLIN [Suspect]
     Active Substance: CEFAZOLIN
  5. NEURONTIN [Suspect]
     Active Substance: GABAPENTIN
  6. NAPROXEN. [Suspect]
     Active Substance: NAPROXEN
  7. PAXIL [Suspect]
     Active Substance: PAROXETINE HYDROCHLORIDE
  8. COLACE [Suspect]
     Active Substance: DOCUSATE SODIUM
  9. BACLOFEN. [Suspect]
     Active Substance: BACLOFEN
     Route: 048
  10. NICOTINE TRANSDERMAL SYSTEM [Suspect]
     Active Substance: NICOTINE
  11. DETROL LA [Suspect]
     Active Substance: TOLTERODINE TARTRATE
  12. K-DUR [Suspect]
     Active Substance: POTASSIUM CHLORIDE

REACTIONS (8)
  - Bacterial infection [Unknown]
  - Implant site dehiscence [Unknown]
  - Implant site infection [Unknown]
  - Incision site erythema [Unknown]
  - Purulent discharge [Unknown]
  - Pocket erosion [Unknown]
  - Cellulitis streptococcal [Unknown]
  - Streptococcus test positive [Unknown]

NARRATIVE: CASE EVENT DATE: 201508
